FAERS Safety Report 8330756-7 (Version None)
Quarter: 2012Q2

REPORT INFORMATION
  Report Type: 
  Country: None (occurrence: None)
  Receive Date: 20120502
  Receipt Date: 20120418
  Transmission Date: 20120825
  Serious: Yes (Other)
  Sender: FDA-Public Use
  Company Number: US-FRI-1000030149

PATIENT
  Age: 3 Year

DRUGS (1)
  1. CITALOPRAM [Suspect]
     Dosage: 40 MG

REACTIONS (3)
  - HYPOTENSION [None]
  - RESPIRATORY DEPRESSION [None]
  - OFF LABEL USE [None]
